FAERS Safety Report 19406944 (Version 1)
Quarter: 2021Q2

REPORT INFORMATION
  Report Type: Spontaneous
  Country: CA (occurrence: CA)
  Receive Date: 20210611
  Receipt Date: 20210611
  Transmission Date: 20210717
  Serious: Yes (Other)
  Sender: FDA-Public Use
  Company Number: NVSC2021CA128926

PATIENT
  Age: 62 Year
  Sex: Female

DRUGS (2)
  1. BEOVU [Suspect]
     Active Substance: BROLUCIZUMAB-DBLL
     Dosage: UNK, Q4W UNK ( X 1 RIGHT EYE)
     Route: 065
     Dates: start: 20210427
  2. BEOVU [Suspect]
     Active Substance: BROLUCIZUMAB-DBLL
     Indication: NEOVASCULAR AGE-RELATED MACULAR DEGENERATION
     Dosage: UNK, Q4W
     Route: 065
     Dates: start: 20210302, end: 20210427

REACTIONS (5)
  - Vitreous floaters [Recovering/Resolving]
  - Photopsia [Recovering/Resolving]
  - Retinal vasculitis [Recovering/Resolving]
  - Rash [Recovering/Resolving]
  - Retinal ischaemia [Recovering/Resolving]

NARRATIVE: CASE EVENT DATE: 20210429
